FAERS Safety Report 7313689-4 (Version None)
Quarter: 2011Q1

REPORT INFORMATION
  Report Type: 
  Country: None (occurrence: None)
  Receive Date: 20110225
  Receipt Date: 20110217
  Transmission Date: 20110831
  Serious: Yes (Other)
  Sender: FDA-Public Use
  Company Number: US-AMGEN-USASP2011009540

PATIENT
  Age: 51 Year
  Sex: Male

DRUGS (2)
  1. PREDNISONE [Concomitant]
  2. ENBREL [Suspect]
     Indication: RHEUMATOID ARTHRITIS
     Dosage: 50 MG, QWK
     Dates: start: 20090301, end: 20090730

REACTIONS (3)
  - CONFUSIONAL STATE [None]
  - RHEUMATOID ARTHRITIS [None]
  - DISORIENTATION [None]
